FAERS Safety Report 7496861-2 (Version None)
Quarter: 2011Q2

REPORT INFORMATION
  Report Type: 
  Country: None (occurrence: None)
  Receive Date: 20110523
  Receipt Date: 20110109
  Transmission Date: 20111010
  Serious: No
  Sender: FDA-Public Use
  Company Number: US-NOVEN-11US001593

PATIENT
  Sex: Female
  Weight: 43.084 kg

DRUGS (5)
  1. ABILIFY [Concomitant]
     Indication: BIPOLAR DISORDER
     Dosage: 15 MG, UNK
     Route: 048
     Dates: start: 20100101
  2. TRILEPTAL [Concomitant]
     Dosage: 600 MG, EVENING
     Route: 048
     Dates: start: 20090101
  3. TENEX [Concomitant]
     Indication: AFFECTIVE DISORDER
     Dosage: 1.5 UNK, BID
     Route: 048
     Dates: start: 20080101
  4. TRILEPTAL [Concomitant]
     Indication: AFFECTIVE DISORDER
     Dosage: 300 MG, MORNING
     Route: 048
     Dates: start: 20090101
  5. DAYTRANA [Suspect]
     Indication: ATTENTION DEFICIT/HYPERACTIVITY DISORDER
     Dosage: 10 MG, UNK
     Route: 062
     Dates: start: 20110109

REACTIONS (3)
  - DRUG ADMINISTRATION ERROR [None]
  - NO ADVERSE EVENT [None]
  - PRODUCT QUALITY ISSUE [None]
